FAERS Safety Report 15828028 (Version 5)
Quarter: 2019Q4

REPORT INFORMATION
  Report Type: Spontaneous
  Country: FR (occurrence: FR)
  Receive Date: 20190115
  Receipt Date: 20191115
  Transmission Date: 20200122
  Serious: Yes (Hospitalization, Disabling, Other)
  Sender: FDA-Public Use
  Company Number: FR-009507513-1901FRA004928

PATIENT
  Sex: Female
  Weight: 57 kg

DRUGS (3)
  1. NEXPLANON [Suspect]
     Active Substance: ETONOGESTREL
     Indication: CONTRACEPTION
     Dosage: 1 IMPLANT
     Route: 058
     Dates: start: 20130214, end: 20130617
  2. PREVISCAN (FLUINDIONE) [Suspect]
     Active Substance: FLUINDIONE
     Dosage: UNK
     Dates: start: 201303, end: 201309
  3. PREVISCAN (FLUINDIONE) [Suspect]
     Active Substance: FLUINDIONE
     Dosage: UNK
     Dates: start: 201405

REACTIONS (19)
  - Ischaemic stroke [Recovered/Resolved with Sequelae]
  - Cervicobrachial syndrome [Unknown]
  - Weight increased [Unknown]
  - Pain [Not Recovered/Not Resolved]
  - Deep vein thrombosis [Unknown]
  - Tachycardia [Unknown]
  - Obesity [Recovered/Resolved]
  - Paranoia [Unknown]
  - Asthenia [Unknown]
  - Pulmonary embolism [Recovered/Resolved]
  - Hypercoagulation [Unknown]
  - Phlebitis [Unknown]
  - Hypertriglyceridaemia [Unknown]
  - Cholecystectomy [Unknown]
  - Drug exposure before pregnancy [Recovered/Resolved]
  - Abortion spontaneous incomplete [Recovered/Resolved]
  - Disturbance in attention [Unknown]
  - Amenorrhoea [Unknown]
  - Musculoskeletal pain [Unknown]

NARRATIVE: CASE EVENT DATE: 2013
